FAERS Safety Report 18486761 (Version 3)
Quarter: 2020Q4

REPORT INFORMATION
  Report Type: Report from Study
  Country: US (occurrence: US)
  Receive Date: 20201110
  Receipt Date: 20201120
  Transmission Date: 20210114
  Serious: No
  Sender: FDA-Public Use
  Company Number: NVSC2020US295965

PATIENT
  Sex: Male
  Weight: 33.56 kg

DRUGS (1)
  1. ILARIS [Suspect]
     Active Substance: CANAKINUMAB
     Indication: CROHN^S DISEASE
     Dosage: 150 MG, Q4W
     Route: 058

REACTIONS (4)
  - Vomiting [Unknown]
  - Product use in unapproved indication [Unknown]
  - Injection site pain [Unknown]
  - Pain in extremity [Unknown]
